FAERS Safety Report 6928261-5 (Version None)
Quarter: 2010Q3

REPORT INFORMATION
  Report Type: 
  Country: None (occurrence: None)
  Receive Date: 20100810
  Receipt Date: 20100719
  Transmission Date: 20110219
  Serious: Yes (Life-Threatening, Disabling, Other)
  Sender: FDA-Public Use
  Company Number: 2010P1000669

PATIENT
  Sex: Male

DRUGS (1)
  1. DURACLON [Suspect]
     Dosage: ;INTH
     Route: 037

REACTIONS (5)
  - BLOOD PRESSURE FLUCTUATION [None]
  - LOSS OF CONSCIOUSNESS [None]
  - OVERDOSE [None]
  - TRANSIENT ISCHAEMIC ATTACK [None]
  - WRONG TECHNIQUE IN DRUG USAGE PROCESS [None]
